FAERS Safety Report 4397961-6 (Version None)
Quarter: 2004Q3

REPORT INFORMATION
  Report Type: 
  Country: None (occurrence: None)
  Receive Date: 20040713
  Receipt Date: 20040702
  Transmission Date: 20050211
  Serious: Yes (Hospitalization)
  Sender: FDA-Public Use
  Company Number: WAES 0311USA01771

PATIENT
  Age: 40 Year
  Sex: Male
  Weight: 83.4619 kg

DRUGS (3)
  1. INJ ERTAPENEM SODIUM 1.0 GM [Suspect]
     Indication: ABDOMINAL INFECTION
     Dosage: 1.0 GM/DAILY/IV
     Route: 042
     Dates: start: 20030603, end: 20030608
  2. PLACEBO [Suspect]
     Dosage: TID/IV
     Route: 042
     Dates: start: 20040603, end: 20040608
  3. DOCUSATE SODIUM [Concomitant]

REACTIONS (6)
  - ABDOMINAL MASS [None]
  - ABSCESS [None]
  - CELLULITIS [None]
  - DRUG INEFFECTIVE [None]
  - PERITONITIS [None]
  - POST PROCEDURAL COMPLICATION [None]
